FAERS Safety Report 11587947 (Version 1)
Quarter: 2015Q4

REPORT INFORMATION
  Report Type: Spontaneous
  Country: US (occurrence: US)
  Receive Date: 20151001
  Receipt Date: 20151001
  Transmission Date: 20160304
  Serious: Yes (Other)
  Sender: FDA-Public Use
  Company Number: US-JNJFOC-20150917038

PATIENT
  Age: 40 Year
  Sex: Female

DRUGS (3)
  1. APAP [Suspect]
     Active Substance: ACETAMINOPHEN
     Route: 048
  2. ETHYL ALCOHOL [Suspect]
     Active Substance: ALCOHOL
     Indication: PRODUCT USED FOR UNKNOWN INDICATION
     Route: 048
  3. APAP [Suspect]
     Active Substance: ACETAMINOPHEN
     Indication: PRODUCT USED FOR UNKNOWN INDICATION
     Dosage: START DATE:OVERNIGHT BETWEEN 14-SEP-2015 AND 15-SEP-2015, 100 (TABLETS)
     Route: 048
     Dates: start: 201509

REACTIONS (6)
  - Liver function test abnormal [Not Recovered/Not Resolved]
  - Overdose [Unknown]
  - Aspartate aminotransferase increased [None]
  - Drug administration error [Not Recovered/Not Resolved]
  - Alanine aminotransferase increased [None]
  - Intentional overdose [None]

NARRATIVE: CASE EVENT DATE: 201509
